FAERS Safety Report 25168903 (Version 2)
Quarter: 2025Q2

REPORT INFORMATION
  Report Type: Report from Study
  Country: BR (occurrence: BR)
  Receive Date: 20250407
  Receipt Date: 20250612
  Transmission Date: 20250717
  Serious: No
  Sender: JOHNSON AND JOHNSON
  Company Number: BR-JNJFOC-20250351490

PATIENT
  Age: 42 Year
  Sex: Female

DRUGS (1)
  1. GUSELKUMAB [Suspect]
     Active Substance: GUSELKUMAB
     Indication: Psoriasis
     Route: 058
     Dates: start: 2024

REACTIONS (3)
  - Device issue [Unknown]
  - Product dose omission issue [Unknown]
  - Nervousness [Unknown]

NARRATIVE: CASE EVENT DATE: 20250313
